FAERS Safety Report 6458646-5 (Version None)
Quarter: 2009Q4

REPORT INFORMATION
  Report Type: 
  Country: None (occurrence: None)
  Receive Date: 20091127
  Receipt Date: 20090915
  Transmission Date: 20100525
  Serious: Yes (Hospitalization, Other)
  Sender: FDA-Public Use
  Company Number: AU-RANBAXY-2009US-27380

PATIENT

DRUGS (5)
  1. PARACETAMOL PENTRU COPII 120MG/5ML SIROP [Suspect]
     Indication: PYREXIA
     Dosage: 19 G IN 7 DAYS
     Route: 048
  2. PENICILLIN VK [Concomitant]
     Indication: PHARYNGITIS
     Route: 065
  3. AMPICILLIN [Concomitant]
     Indication: PHARYNGITIS
     Route: 065
  4. CHLORAMPHENICOL [Concomitant]
     Indication: URINARY TRACT INFECTION
     Dosage: 600 MG, EVERY 4 HRS
     Route: 042
  5. KANAMYCIN [Concomitant]
     Indication: URINARY TRACT INFECTION
     Dosage: 75 MG EVERY 4 HRS
     Route: 030

REACTIONS (3)
  - DRUG TOXICITY [None]
  - LIVER INJURY [None]
  - POISONING [None]
